FAERS Safety Report 14915024 (Version 1)
Quarter: 2018Q2

REPORT INFORMATION
  Report Type: Spontaneous
  Country: US (occurrence: US)
  Receive Date: 20180501
  Receipt Date: 20180501
  Transmission Date: 20180711
  Serious: Yes (Hospitalization, Other)
  Sender: FDA-Public Use
  Company Number: None

PATIENT
  Sex: Female

DRUGS (4)
  1. MULTI-VITAMIN TABLETS [Concomitant]
  2. VITAMIN C 500MG TABLETS [Concomitant]
  3. LUPRON [Suspect]
     Active Substance: LEUPROLIDE ACETATE
     Indication: UTERINE LEIOMYOMA
     Dosage: ?          OTHER FREQUENCY:QM;?
     Route: 030
     Dates: start: 20180131, end: 20180501
  4. IRON 27MG TABLETS [Concomitant]

REACTIONS (1)
  - Haemorrhage [None]
